FAERS Safety Report 16565719 (Version 2)
Quarter: 2019Q3

REPORT INFORMATION
  Report Type: Spontaneous
  Country: US (occurrence: US)
  Receive Date: 20190712
  Receipt Date: 20190730
  Transmission Date: 20191004
  Serious: No
  Sender: FDA-Public Use
  Company Number: US-PFIZER INC-2019291605

PATIENT
  Age: 61 Year
  Sex: Male
  Weight: 158.73 kg

DRUGS (1)
  1. METAXALONE. [Suspect]
     Active Substance: METAXALONE
     Indication: MUSCLE SPASMS
     Dosage: 800 MG, 3X/DAY

REACTIONS (3)
  - Intentional product misuse [Unknown]
  - Body height decreased [Unknown]
  - Nervous system disorder [Unknown]
